FAERS Safety Report 10231419 (Version 2)
Quarter: 2014Q2

REPORT INFORMATION
  Report Type: Spontaneous
  Country: CN (occurrence: CN)
  Receive Date: 20140611
  Receipt Date: 20140612
  Transmission Date: 20141212
  Serious: Yes (Other)
  Sender: FDA-Public Use
  Company Number: CN-PFIZER INC-2014157750

PATIENT
  Age: 53 Year
  Sex: Female

DRUGS (2)
  1. SOLU-MEDROL [Suspect]
     Indication: ASTHMA
     Dosage: 40 MG, UNK
     Dates: start: 20120727, end: 20120727
  2. SOLU-MEDROL [Suspect]
     Dosage: 80 MG, UNK
     Dates: start: 20120728, end: 20120728

REACTIONS (2)
  - Shock [Recovering/Resolving]
  - Wheezing [Recovering/Resolving]
